FAERS Safety Report 5992937-7 (Version None)
Quarter: 2008Q4

REPORT INFORMATION
  Report Type: 
  Country: None (occurrence: None)
  Receive Date: 20081212
  Receipt Date: 20081130
  Transmission Date: 20090506
  Serious: Yes (Other)
  Sender: FDA-Public Use
  Company Number: CN-JNJFOC-20081200956

PATIENT
  Age: 27 Year
  Sex: Male

DRUGS (8)
  1. TOPIRAMATE [Suspect]
     Route: 048
  2. TOPIRAMATE [Suspect]
     Route: 048
  3. TOPIRAMATE [Suspect]
     Route: 048
  4. TOPIRAMATE [Suspect]
     Route: 048
  5. TOPIRAMATE [Suspect]
     Route: 048
  6. TOPIRAMATE [Suspect]
     Route: 048
  7. TOPIRAMATE [Suspect]
     Route: 048
  8. TOPIRAMATE [Suspect]
     Indication: EPILEPSY
     Route: 048

REACTIONS (7)
  - AFFECT LABILITY [None]
  - ANHIDROSIS [None]
  - COMMUNICATION DISORDER [None]
  - IMPAIRED SELF-CARE [None]
  - MEMORY IMPAIRMENT [None]
  - SPEECH DISORDER [None]
  - WEIGHT DECREASED [None]
